FAERS Safety Report 18004617 (Version 1)
Quarter: 2020Q3

REPORT INFORMATION
  Report Type: Spontaneous
  Country: FR (occurrence: FR)
  Receive Date: 20200709
  Receipt Date: 20200709
  Transmission Date: 20201103
  Serious: Yes (Other)
  Sender: FDA-Public Use
  Company Number: FR-009507513-2007FRA003089

PATIENT
  Age: 57 Year
  Sex: Female

DRUGS (1)
  1. PEMBROLIZUMAB. [Suspect]
     Active Substance: PEMBROLIZUMAB
     Indication: NON-SMALL CELL LUNG CANCER METASTATIC
     Dosage: 2 MILLIGRAM/KILOGRAM, Q3W

REACTIONS (3)
  - Off label use [Unknown]
  - Scleroderma renal crisis [Unknown]
  - Systemic scleroderma [Unknown]
